FAERS Safety Report 21739961 (Version 3)
Quarter: 2024Q3

REPORT INFORMATION
  Report Type: Spontaneous
  Country: US (occurrence: US)
  Receive Date: 20221216
  Receipt Date: 20240723
  Transmission Date: 20241016
  Serious: Yes (Other)
  Sender: GLAXOSMITHKLINE
  Company Number: US-GSK-US2022183510

PATIENT

DRUGS (2)
  1. NUCALA [Suspect]
     Active Substance: MEPOLIZUMAB
     Indication: Asthma
     Dosage: 100 MG (1 A MONTH)
  2. MUCINEX DM [Concomitant]
     Active Substance: DEXTROMETHORPHAN HYDROBROMIDE\GUAIFENESIN
     Indication: Cough
     Dosage: UNK,EVERY 12 HRS
     Dates: start: 20221206

REACTIONS (9)
  - Neoplasm malignant [Unknown]
  - Radiation cardiac injury [Unknown]
  - Asthma [Not Recovered/Not Resolved]
  - Influenza [Recovered/Resolved]
  - Pyrexia [Unknown]
  - Mouth ulceration [Unknown]
  - Heart rate increased [Unknown]
  - Traumatic lung injury [Unknown]
  - Liver disorder [Unknown]

NARRATIVE: CASE EVENT DATE: 20221108
